FAERS Safety Report 8330118-2 (Version None)
Quarter: 2012Q2

REPORT INFORMATION
  Report Type: 
  Country: None (occurrence: None)
  Receive Date: 20120502
  Receipt Date: 20120418
  Transmission Date: 20120825
  Serious: Yes (Hospitalization, Other)
  Sender: FDA-Public Use
  Company Number: CN-JNJFOC-20111008812

PATIENT
  Sex: Male
  Weight: 35 kg

DRUGS (1)
  1. KETOCONAZOLE [Suspect]
     Indication: TINEA PEDIS
     Route: 061
     Dates: start: 20111013, end: 20111014

REACTIONS (1)
  - HENOCH-SCHONLEIN PURPURA [None]
